FAERS Safety Report 12634520 (Version 1)
Quarter: 2016Q3

REPORT INFORMATION
  Report Type: Spontaneous
  Country: US (occurrence: None)
  Receive Date: 20160808
  Receipt Date: 20160808
  Transmission Date: 20161109
  Serious: No
  Sender: FDA-Public Use
  Company Number: None

PATIENT
  Age: 50 Year
  Sex: Female
  Weight: 70 kg

DRUGS (13)
  1. ASPIRIN. [Concomitant]
     Active Substance: ASPIRIN
  2. LEVETIRACETAM, 500MG/5ML PHARMACEUTICAL ASSOCIATES [Suspect]
     Active Substance: LEVETIRACETAM
     Indication: STATUS EPILEPTICUS
     Route: 048
     Dates: start: 20160713, end: 20160714
  3. ERYTHROMYCIN. [Concomitant]
     Active Substance: ERYTHROMYCIN
  4. DOCUSATE-SENNA (SENOKOT S) [Concomitant]
  5. VALPROIC ACID. [Concomitant]
     Active Substance: VALPROIC ACID
  6. LEVETIRACETAM, 500MG/5ML PHARMACEUTICAL ASSOCIATES [Suspect]
     Active Substance: LEVETIRACETAM
     Indication: PYREXIA
     Route: 048
     Dates: start: 20160713, end: 20160714
  7. ENOXAPARIN [Concomitant]
     Active Substance: ENOXAPARIN
  8. PHENYTOIN. [Concomitant]
     Active Substance: PHENYTOIN
  9. ATORVASTATIN [Concomitant]
     Active Substance: ATORVASTATIN
  10. LANSOPRAZOLE (PREVACID) [Concomitant]
  11. VANCOMYCIN [Concomitant]
     Active Substance: VANCOMYCIN
  12. LEVOCARNITINE. [Concomitant]
     Active Substance: LEVOCARNITINE
  13. OXYCHLOROSENE SODIUM. [Concomitant]
     Active Substance: OXYCHLOROSENE SODIUM

REACTIONS (2)
  - Angioedema [None]
  - Swollen tongue [None]

NARRATIVE: CASE EVENT DATE: 20160714
